FAERS Safety Report 8985251 (Version 1)
Quarter: 2012Q4

REPORT INFORMATION
  Report Type: 
  Country: SE (occurrence: SE)
  Receive Date: 20121226
  Receipt Date: 20121226
  Transmission Date: 20130627
  Serious: Yes (Other)
  Sender: FDA-Public Use
  Company Number: SE-BAYER-2012-116033

PATIENT
  Age: 44 Year
  Sex: Female

DRUGS (1)
  1. MIRENA [Suspect]
     Indication: MENSTRUATION INCREASED
     Dosage: 20 mcg/24hr, CONT
     Route: 015
     Dates: start: 20120126, end: 20121102

REACTIONS (4)
  - Vaginal haemorrhage [None]
  - Genital haemorrhage [None]
  - Ovarian cyst [None]
  - Urinary tract infection [None]
